FAERS Safety Report 15787456 (Version 2)
Quarter: 2021Q3

REPORT INFORMATION
  Report Type: Spontaneous
  Country: US (occurrence: US)
  Receive Date: 20190103
  Receipt Date: 20210928
  Transmission Date: 20211014
  Serious: Yes (Other)
  Sender: FDA-Public Use
  Company Number: US-BAUSCH-BL-2018-036254

PATIENT
  Age: 70 Year
  Sex: Male

DRUGS (10)
  1. LATANOPROST. [Suspect]
     Active Substance: LATANOPROST
     Dosage: RESTARTED IN THE LEFT EYE
     Route: 065
  2. BRIMONIDINE [Suspect]
     Active Substance: BRIMONIDINE TARTRATE
     Indication: INTRAOCULAR PRESSURE INCREASED
     Route: 065
  3. BRIMONIDINE [Suspect]
     Active Substance: BRIMONIDINE TARTRATE
     Dosage: RESTARTED 5 WEEKS LATER AFTER RESTARTING LATANOPROST
     Route: 065
  4. LATANOPROST. [Suspect]
     Active Substance: LATANOPROST
     Indication: INTRAOCULAR PRESSURE INCREASED
     Route: 065
  5. BRIMONIDINE [Suspect]
     Active Substance: BRIMONIDINE TARTRATE
     Dosage: RESTARTED IN THE LEFT EYE
     Route: 065
  6. LATANOPROST. [Suspect]
     Active Substance: LATANOPROST
     Dosage: INITIALLY RESTARTED
     Route: 065
  7. DORZOLAMIDE?TIMOLOL [Suspect]
     Active Substance: DORZOLAMIDE\TIMOLOL
     Dosage: RESTARTED 5 WEEKS LATER AFTER LATANOPROST
     Route: 065
  8. DORZOLAMIDE?TIMOLOL [Suspect]
     Active Substance: DORZOLAMIDE\TIMOLOL
     Indication: INTRAOCULAR PRESSURE INCREASED
     Route: 065
  9. LATANOPROST. [Suspect]
     Active Substance: LATANOPROST
     Dosage: RESTARTED 4 MONTHS LATER AFTER DORZOLAMIDE?TIMOLOL, AND BRIMONIDINE
     Route: 065
  10. DORZOLAMIDE?TIMOLOL [Suspect]
     Active Substance: DORZOLAMIDE\TIMOLOL
     Dosage: RESTARTED IN THE LEFT EYE
     Route: 065

REACTIONS (3)
  - Disease recurrence [Recovering/Resolving]
  - Hypotony of eye [Recovering/Resolving]
  - Choroidal effusion [Recovering/Resolving]
